FAERS Safety Report 18836181 (Version 1)
Quarter: 2021Q1

REPORT INFORMATION
  Report Type: Spontaneous
  Country: US (occurrence: US)
  Receive Date: 20210203
  Receipt Date: 20210203
  Transmission Date: 20210419
  Serious: Yes (Hospitalization)
  Sender: FDA-Public Use
  Company Number: None

PATIENT
  Age: 69 Year
  Sex: Male
  Weight: 101.4 kg

DRUGS (22)
  1. ALBUTEROL. [Concomitant]
     Active Substance: ALBUTEROL
  2. ATENOLOL. [Concomitant]
     Active Substance: ATENOLOL
  3. CETIRIZINE [Concomitant]
     Active Substance: CETIRIZINE HYDROCHLORIDE
  4. FENOFIBRATE. [Concomitant]
     Active Substance: FENOFIBRATE
  5. TACROLIMUS. [Concomitant]
     Active Substance: TACROLIMUS
  6. DORZOLAMIDE?TIMOLOL OPHTH [Concomitant]
  7. FUROSEMIDE. [Concomitant]
     Active Substance: FUROSEMIDE
  8. BAMLANIVIMAB FOR EUA [Suspect]
     Active Substance: BAMLANIVIMAB
     Indication: COVID-19
     Route: 042
     Dates: start: 20201229, end: 20201229
  9. BMIATOPROST OPTH [Concomitant]
  10. FAMOTIDINE. [Concomitant]
     Active Substance: FAMOTIDINE
  11. LISINOPRIL. [Concomitant]
     Active Substance: LISINOPRIL
  12. ASPIRIN. [Concomitant]
     Active Substance: ASPIRIN
  13. AZATHIAPRINE [Concomitant]
  14. PREDNISONE. [Concomitant]
     Active Substance: PREDNISONE
  15. DOCUSATE/SENNA [Concomitant]
     Active Substance: DOCUSATE SODIUM\SENNA LEAF
  16. FLUTICASONE NASAL [Concomitant]
     Active Substance: FLUTICASONE
  17. PAROXETINE. [Concomitant]
     Active Substance: PAROXETINE
  18. PRAVASTATIN. [Concomitant]
     Active Substance: PRAVASTATIN
  19. APIXABAN [Concomitant]
     Active Substance: APIXABAN
  20. CALCIUM/VITAMIN D [Concomitant]
     Active Substance: CALCIUM\VITAMIN D
  21. CYANOCOBALAMIN. [Concomitant]
     Active Substance: CYANOCOBALAMIN
  22. TAMSULOSIN [Concomitant]
     Active Substance: TAMSULOSIN

REACTIONS (10)
  - Pyrexia [None]
  - Cough [None]
  - Diarrhoea [None]
  - Respiratory failure [None]
  - Myalgia [None]
  - Arthralgia [None]
  - Blood pressure abnormal [None]
  - Oedema peripheral [None]
  - Chills [None]
  - Pleuritic pain [None]

NARRATIVE: CASE EVENT DATE: 20210112
